FAERS Safety Report 10344148 (Version 4)
Quarter: 2014Q4

REPORT INFORMATION
  Report Type: Spontaneous
  Country: IT (occurrence: IT)
  Receive Date: 20140728
  Receipt Date: 20141029
  Transmission Date: 20150528
  Serious: Yes (Hospitalization)
  Sender: FDA-Public Use
  Company Number: IT-RANBAXY-2014RR-83777

PATIENT
  Age: 72 Year
  Sex: Female

DRUGS (5)
  1. TACHIPIRINA [Suspect]
     Active Substance: ACETAMINOPHEN
     Indication: DRUG ABUSE
     Dosage: 3000 MG TOTAL
     Route: 048
     Dates: start: 20140522, end: 20140522
  2. CONCOR [Suspect]
     Active Substance: BISOPROLOL FUMARATE
     Indication: DRUG ABUSE
     Dosage: 30 MG TOTAL
     Route: 048
     Dates: start: 20140522, end: 20140522
  3. LORAZEPAM. [Suspect]
     Active Substance: LORAZEPAM
     Indication: DRUG ABUSE
     Dosage: 3 MG TOTAL
     Route: 048
     Dates: start: 20140522, end: 20140522
  4. DEPAKENE [Suspect]
     Active Substance: VALPROIC ACID
     Indication: DRUG ABUSE
     Dosage: 600 MG TOTAL
     Route: 048
     Dates: start: 20140522, end: 20140522
  5. CYMBALTA [Suspect]
     Active Substance: DULOXETINE HYDROCHLORIDE
     Indication: DRUG ABUSE
     Dosage: 90 MG TOTAL
     Route: 048
     Dates: start: 20140522, end: 20140522

REACTIONS (3)
  - Sopor [Recovered/Resolved]
  - Loss of consciousness [Recovered/Resolved]
  - Drug abuse [Recovered/Resolved]

NARRATIVE: CASE EVENT DATE: 20140522
